FAERS Safety Report 13636916 (Version 1)
Quarter: 2017Q2

REPORT INFORMATION
  Report Type: Spontaneous
  Country: US (occurrence: US)
  Receive Date: 20170531
  Receipt Date: 20170531
  Transmission Date: 20170830
  Serious: No
  Sender: FDA-Public Use
  Company Number: US-ASTELLAS-778905

PATIENT
  Age: 75 Year
  Sex: Male
  Weight: 78.9 kg

DRUGS (1)
  1. TARCEVA [Suspect]
     Active Substance: ERLOTINIB HYDROCHLORIDE
     Indication: NON-SMALL CELL LUNG CANCER
     Route: 048
     Dates: start: 20110315, end: 20110501

REACTIONS (6)
  - Diarrhoea [Recovered/Resolved]
  - Rash [Unknown]
  - Rash [Recovered/Resolved]
  - Migraine [Unknown]
  - Retching [Unknown]
  - Cyst [Unknown]

NARRATIVE: CASE EVENT DATE: 201104
